FAERS Safety Report 13074306 (Version 1)
Quarter: 2016Q4

REPORT INFORMATION
  Report Type: Spontaneous
  Country: US (occurrence: US)
  Receive Date: 20161230
  Receipt Date: 20161230
  Transmission Date: 20170207
  Serious: No
  Sender: FDA-Public Use
  Company Number: US-SUN PHARMACEUTICAL INDUSTRIES LTD-2016US-118138

PATIENT
  Age: 20 Year
  Sex: Male

DRUGS (1)
  1. ACETAMINOPHEN. [Suspect]
     Active Substance: ACETAMINOPHEN
     Indication: PRODUCT USED FOR UNKNOWN INDICATION
     Dosage: 3 DF, SINGLE
     Route: 065
     Dates: start: 20160603

REACTIONS (2)
  - Inappropriate schedule of drug administration [Unknown]
  - Overdose [Unknown]

NARRATIVE: CASE EVENT DATE: 20160603
